FAERS Safety Report 25480312 (Version 1)
Quarter: 2025Q2

REPORT INFORMATION
  Report Type: Spontaneous
  Country: US (occurrence: US)
  Receive Date: 20250625
  Receipt Date: 20250625
  Transmission Date: 20250716
  Serious: No
  Sender: BANNER
  Company Number: BANN2400191

PATIENT

DRUGS (2)
  1. BAFIERTAM [Suspect]
     Active Substance: MONOMETHYL FUMARATE
     Indication: Multiple sclerosis
     Route: 065
  2. ASPIRIN [Concomitant]
     Active Substance: ASPIRIN
     Indication: Product used for unknown indication

REACTIONS (3)
  - Muscle spasms [Recovered/Resolved]
  - Oral disorder [Not Recovered/Not Resolved]
  - Oral pruritus [Not Recovered/Not Resolved]

NARRATIVE: CASE EVENT DATE: 20240601
